FAERS Safety Report 9779940 (Version 4)
Quarter: 2015Q1

REPORT INFORMATION
  Report Type: Report from Study
  Country: US (occurrence: US)
  Receive Date: 20131223
  Receipt Date: 20150302
  Transmission Date: 20150721
  Serious: Yes (Other)
  Sender: FDA-Public Use
  Company Number: US-GLAXOSMITHKLINE-Z0021848B

PATIENT
  Age: 45 Year
  Sex: Female
  Weight: 81.2 kg

DRUGS (1)
  1. BELIMUMAB [Suspect]
     Active Substance: BELIMUMAB
     Indication: SYSTEMIC LUPUS ERYTHEMATOSUS
     Dosage: 10 MG/KG, CYC
     Route: 042
     Dates: start: 20131121

REACTIONS (1)
  - Benign neoplasm of adrenal gland [Recovered/Resolved]

NARRATIVE: CASE EVENT DATE: 20131205
